FAERS Safety Report 11985429 (Version 1)
Quarter: 2016Q1

REPORT INFORMATION
  Report Type: Other
  Country: US (occurrence: US)
  Receive Date: 20160201
  Receipt Date: 20160201
  Transmission Date: 20160526
  Serious: Yes (Life-Threatening, Hospitalization, Disabling, Other)
  Sender: FDA-Public Use
  Company Number: US-PURDUE-GBR-2016-0033631

PATIENT
  Age: 44 Year
  Sex: Male

DRUGS (2)
  1. NON-PMN MORPHINE SULFATE [Suspect]
     Active Substance: MORPHINE SULFATE
     Indication: BACK PAIN
     Route: 042
  2. PREDNISONE. [Suspect]
     Active Substance: PREDNISONE
     Indication: ARTHRITIS INFECTIVE
     Route: 048

REACTIONS (2)
  - Self-medication [Recovered/Resolved with Sequelae]
  - Endocarditis [Recovered/Resolved with Sequelae]
